FAERS Safety Report 4512801-X (Version None)
Quarter: 2004Q4

REPORT INFORMATION
  Report Type: 
  Country: None (occurrence: None)
  Receive Date: 20041119
  Receipt Date: 20041119
  Transmission Date: 20050328
  Serious: No
  Sender: FDA-Public Use
  Company Number: None

PATIENT
  Sex: Male

DRUGS (2)
  1. NEURONTIN [Suspect]
     Indication: PARANOIA
     Dosage: 300 MG BID
  2. NEURONTIN [Suspect]
     Indication: SCHIZOPHRENIA
     Dosage: 300 MG BID

REACTIONS (1)
  - REFUSAL OF TREATMENT BY PATIENT [None]
